FAERS Safety Report 25946843 (Version 1)
Quarter: 2025Q4

REPORT INFORMATION
  Report Type: Spontaneous
  Country: EU (occurrence: EU)
  Receive Date: 20251022
  Receipt Date: 20251022
  Transmission Date: 20260118
  Serious: Yes (Death, Hospitalization, Other)
  Sender: ALEXION PHARMACEUTICALS
  Company Number: None

PATIENT
  Age: 72 Year
  Sex: Male
  Weight: 140 kg

DRUGS (9)
  1. DAPAGLIFLOZIN [Suspect]
     Active Substance: DAPAGLIFLOZIN
     Indication: Type 2 diabetes mellitus
     Dosage: THE PATIENT REPORTEDLY DID NOT TAKE ANY MEDICATION FOR 7-8 DAYS PRIOR TO HOSPITALISATION.
     Dates: start: 20200511
  2. METOPROLOL [Concomitant]
     Active Substance: METOPROLOL
     Indication: Cardiac failure
     Dosage: 100 MG + 50 MG. THE PATIENT REPORTEDLY DID NOT TAKE ANY MEDICATION FOR 7-8 DAYS PRIOR TO HOSPITALISATION.
     Route: 065
  3. METOPROLOL [Concomitant]
     Active Substance: METOPROLOL
     Indication: Cardiac failure
  4. ENTRESTO [Concomitant]
     Active Substance: SACUBITRIL\VALSARTAN
     Indication: Cardiac failure chronic
     Dosage: 97+103 MG MORNINGS AND 49+50 MG NIGHTS. THE PATIENT REPORTEDLY DID NOT TAKE ANY MEDICATION FOR 7-8 DAYS PRIOR TO HOSPITALISATION.
     Route: 065
  5. ENTRESTO [Concomitant]
     Active Substance: SACUBITRIL\VALSARTAN
     Indication: Cardiac failure chronic
  6. CORDARONE [Concomitant]
     Active Substance: AMIODARONE HYDROCHLORIDE
     Indication: Cardiac disorder
     Dosage: UNKNOWN DOSING. THE PATIENT REPORTEDLY DID NOT TAKE ANY MEDICATION FOR 7-8 DAYS PRIOR TO HOSPITALISATION.
     Route: 065
  7. CORDARONE [Concomitant]
     Active Substance: AMIODARONE HYDROCHLORIDE
     Indication: Cardiac disorder
  8. ELIQUIS [Concomitant]
     Active Substance: APIXABAN
     Indication: Thrombosis prophylaxis
     Dosage: THE PATIENT REPORTEDLY DID NOT TAKE ANY MEDICATION FOR 7-8 DAYS PRIOR TO HOSPITALISATION.
     Route: 065
  9. ELIQUIS [Concomitant]
     Active Substance: APIXABAN
     Indication: Thrombosis prophylaxis

REACTIONS (7)
  - Sepsis [Unknown]
  - Haemodynamic instability [Unknown]
  - Septic shock [Unknown]
  - Necrotising soft tissue infection [Fatal]
  - Faeces discoloured [Unknown]
  - Acute kidney injury [Unknown]
  - Abdominal pain [Unknown]

NARRATIVE: CASE EVENT DATE: 20250901
